FAERS Safety Report 7174565-3 (Version None)
Quarter: 2010Q4

REPORT INFORMATION
  Report Type: 
  Country: None (occurrence: None)
  Receive Date: 20101219
  Receipt Date: 20100331
  Transmission Date: 20110411
  Serious: No
  Sender: FDA-Public Use
  Company Number: US-AMGEN-KDL401954

PATIENT

DRUGS (3)
  1. ENBREL [Suspect]
     Indication: PSORIASIS
     Dosage: 50 MG, 2 TIMES/WK
     Route: 058
     Dates: start: 20100310
  2. MECLIZINE [Concomitant]
     Dosage: 25 MG, UNK
     Dates: start: 20091201
  3. FLUOXETINE [Concomitant]
     Dosage: 20 MG, UNK
     Dates: start: 20091201

REACTIONS (6)
  - HEADACHE [None]
  - INJECTION SITE ERYTHEMA [None]
  - INJECTION SITE IRRITATION [None]
  - INJECTION SITE SWELLING [None]
  - PALPITATIONS [None]
  - VISION BLURRED [None]
